FAERS Safety Report 6371914-0 (Version None)
Quarter: 2009Q3

REPORT INFORMATION
  Report Type: 
  Country: None (occurrence: None)
  Receive Date: 20090923
  Receipt Date: 20090915
  Transmission Date: 20100115
  Serious: Yes (Hospitalization)
  Sender: FDA-Public Use
  Company Number: FR-GILEAD-2009-0024263

PATIENT
  Sex: Male

DRUGS (2)
  1. TRUVADA [Suspect]
     Indication: PROPHYLAXIS AGAINST HIV INFECTION
     Route: 048
     Dates: start: 20090712, end: 20090712
  2. KALETRA [Suspect]
     Indication: PROPHYLAXIS AGAINST HIV INFECTION
     Route: 048
     Dates: start: 20090712, end: 20090712

REACTIONS (6)
  - DRUG ADMINISTRATION ERROR [None]
  - MEDICATION ERROR [None]
  - NAUSEA [None]
  - NYSTAGMUS [None]
  - OCULOGYRIC CRISIS [None]
  - VERTIGO [None]
